FAERS Safety Report 6704895-8 (Version None)
Quarter: 2010Q2

REPORT INFORMATION
  Report Type: 
  Country: None (occurrence: None)
  Receive Date: 20100430
  Receipt Date: 20100108
  Transmission Date: 20101027
  Serious: No
  Sender: FDA-Public Use
  Company Number: US-ASTRAZENECA-2010SE00967

PATIENT
  Sex: Male

DRUGS (5)
  1. NEXIUM [Suspect]
     Indication: GASTROOESOPHAGEAL REFLUX DISEASE
     Route: 048
     Dates: start: 20090301
  2. NEXIUM [Suspect]
     Indication: OESOPHAGEAL ULCER
     Route: 048
     Dates: start: 20090301
  3. NEXIUM [Suspect]
     Route: 048
     Dates: start: 20100107
  4. NEXIUM [Suspect]
     Route: 048
     Dates: start: 20100107
  5. SYNTHROID [Concomitant]

REACTIONS (1)
  - OESOPHAGEAL ULCER [None]
